FAERS Safety Report 8581383 (Version 3)
Quarter: 2012Q4

REPORT INFORMATION
  Report Type: 
  Country: US (occurrence: US)
  Receive Date: 20120525
  Receipt Date: 20121004
  Transmission Date: 20130627
  Serious: Yes (Death, Other)
  Sender: FDA-Public Use
  Company Number: US-MILLENNIUM PHARMACEUTICALS, INC.-2012-03727

PATIENT
  Age: 78 Year
  Sex: Male

DRUGS (6)
  1. VELCADE [Suspect]
     Indication: MULTIPLE MYELOMA
     Dosage: 2 mg, 1/week
     Route: 042
     Dates: start: 20090813, end: 20120103
  2. DEXAMETHASONE [Suspect]
     Indication: MULTIPLE MYELOMA
  3. LENALIDOMIDE [Suspect]
     Indication: MULTIPLE MYELOMA
  4. CYCLOPHOSPHAMIDE [Suspect]
     Indication: MULTIPLE MYELOMA
  5. BISPHOSPHONATES [Concomitant]
     Indication: PRODUCT USED FOR UNKNOWN INDICATION
  6. TRAVOPROST [Concomitant]
     Indication: PRODUCT USED FOR UNKNOWN INDICATION
     Route: 047

REACTIONS (2)
  - Chalazion [Unknown]
  - Plasma cell myeloma [Fatal]
